FAERS Safety Report 19589178 (Version 1)
Quarter: 2021Q3

REPORT INFORMATION
  Report Type: Other
  Country: CN (occurrence: CN)
  Receive Date: 20210721
  Receipt Date: 20210721
  Transmission Date: 20211014
  Serious: Yes (Death, Other)
  Sender: FDA-Public Use
  Company Number: CN-ROCHE-2868857

PATIENT
  Sex: Female

DRUGS (3)
  1. AVASTIN [Suspect]
     Active Substance: BEVACIZUMAB
     Indication: HEPATIC CANCER
     Route: 065
  2. TECENTRIQ [Suspect]
     Active Substance: ATEZOLIZUMAB
     Indication: HEPATIC CANCER
     Route: 065
  3. LENVATINIB [Concomitant]
     Active Substance: LENVATINIB

REACTIONS (3)
  - Death [Fatal]
  - Haematemesis [Unknown]
  - Portal hypertension [Unknown]

NARRATIVE: CASE EVENT DATE: 20210701
